FAERS Safety Report 10005965 (Version 1)
Quarter: 2014Q1

REPORT INFORMATION
  Report Type: Spontaneous
  Country: CN (occurrence: CN)
  Receive Date: 20140313
  Receipt Date: 20140313
  Transmission Date: 20141002
  Serious: Yes (Life-Threatening, Hospitalization)
  Sender: FDA-Public Use
  Company Number: CN-JNJFOC-20140212134

PATIENT
  Age: 36 Year
  Sex: Female

DRUGS (7)
  1. ITRACONAZOLE [Suspect]
     Indication: PULMONARY MYCOSIS
     Dosage: ON DAY 100, LOADING DOSE
     Route: 042
  2. ITRACONAZOLE [Suspect]
     Indication: PULMONARY MYCOSIS
     Route: 042
  3. ITRACONAZOLE [Suspect]
     Indication: PULMONARY MYCOSIS
     Route: 042
  4. ITRACONAZOLE [Suspect]
     Indication: PULMONARY MYCOSIS
     Dosage: ON DAY 118
     Route: 042
  5. AMPHOTERICIN B [Suspect]
     Indication: ANTIFUNGAL TREATMENT
     Route: 065
  6. METHOTREXATE [Suspect]
     Indication: CHEMOTHERAPY
     Dosage: ON DAY 1
     Route: 065
  7. CYTARABINE [Suspect]
     Indication: CHEMOTHERAPY
     Dosage: ON DAYS 2- 3
     Route: 065

REACTIONS (4)
  - Anaphylactic shock [Recovered/Resolved]
  - Type IV hypersensitivity reaction [Recovered/Resolved]
  - Hypotension [Recovered/Resolved]
  - Hypoxia [Recovered/Resolved]
